FAERS Safety Report 5541536-X (Version None)
Quarter: 2007Q4

REPORT INFORMATION
  Report Type: 
  Country: None (occurrence: None)
  Receive Date: 20071210
  Receipt Date: 20071207
  Transmission Date: 20080405
  Serious: Yes (Other)
  Sender: FDA-Public Use
  Company Number: TR-BRISTOL-MYERS SQUIBB COMPANY-14001846

PATIENT
  Age: 61 Year
  Sex: Male

DRUGS (3)
  1. ETOPOSIDE [Suspect]
     Indication: LUNG CARCINOMA CELL TYPE UNSPECIFIED STAGE IV
     Dosage: RECEIVED ON DAYS 1 TO 21 OF A 4 WEEK CYCLE.
     Route: 048
  2. CISPLATIN [Suspect]
  3. RADIOTHERAPY [Suspect]
     Dosage: I DOSAGE FORM=50GY

REACTIONS (2)
  - LEUKOCYTOCLASTIC VASCULITIS [None]
  - MALIGNANT NEOPLASM PROGRESSION [None]
